FAERS Safety Report 9129753 (Version 1)
Quarter: 2013Q1

REPORT INFORMATION
  Report Type: Report from Study
  Country: US (occurrence: US)
  Receive Date: 20130228
  Receipt Date: 20130228
  Transmission Date: 20140127
  Serious: Yes (Death, Hospitalization)
  Sender: FDA-Public Use
  Company Number: US-ACTELION-A-US2013-79620

PATIENT
  Age: 45 Year
  Sex: Female

DRUGS (6)
  1. VELETRI [Suspect]
     Indication: PULMONARY ARTERIAL HYPERTENSION
     Dosage: 40 NG/KG, UNK
     Route: 042
     Dates: start: 20100702, end: 20130217
  2. COUMADIN [Concomitant]
  3. CYMBALTA [Concomitant]
  4. FENTANYL [Concomitant]
  5. OXYCODONE [Concomitant]
  6. RESTORIL [Concomitant]

REACTIONS (4)
  - Pulmonary arterial hypertension [Fatal]
  - Condition aggravated [Fatal]
  - Respiratory arrest [Fatal]
  - Syncope [Fatal]
